FAERS Safety Report 9433848 (Version 1)
Quarter: 2013Q3

REPORT INFORMATION
  Report Type: Spontaneous
  Country: US (occurrence: US)
  Receive Date: 20130731
  Receipt Date: 20130731
  Transmission Date: 20140515
  Serious: No
  Sender: FDA-Public Use
  Company Number: US-ASTRAZENECA-2013SE50172

PATIENT
  Sex: Male

DRUGS (2)
  1. SEROQUEL [Suspect]
     Indication: DEPRESSION
     Route: 048
  2. ELAVIL [Suspect]
     Route: 065

REACTIONS (4)
  - Panic attack [Unknown]
  - Weight increased [Unknown]
  - Increased appetite [Unknown]
  - Drug ineffective [Unknown]
